FAERS Safety Report 5933563-5 (Version None)
Quarter: 2008Q4

REPORT INFORMATION
  Report Type: 
  Country: None (occurrence: None)
  Receive Date: 20081024
  Receipt Date: 20081009
  Transmission Date: 20090506
  Serious: Yes (Hospitalization, Other)
  Sender: FDA-Public Use
  Company Number: DSM-2007-00987

PATIENT
  Age: 59 Year
  Sex: Male
  Weight: 95 kg

DRUGS (3)
  1. OLMESARTAN MEDOXOMIL [Suspect]
     Indication: PROPHYLAXIS
     Dosage: 40 MG (40 MG, 1 IN 1 D), ORAL
     Route: 048
     Dates: start: 20060817, end: 20071205
  2. SIOFOR (METFORMIN HYDROCHLORIDE) (850 MILLIGRAM, TABLET) (METFORMIN HY [Concomitant]
  3. AMARYL (GLIMEPIRIDE) (4 MILLIGRAM, TABLET) (GLIMEPIRIDE) [Concomitant]

REACTIONS (2)
  - ANAEMIA [None]
  - GASTRIC ULCER [None]
